FAERS Safety Report 8052495-2 (Version None)
Quarter: 2012Q1

REPORT INFORMATION
  Report Type: 
  Country: None (occurrence: None)
  Receive Date: 20120118
  Receipt Date: 20120111
  Transmission Date: 20120608
  Serious: Yes (Other)
  Sender: FDA-Public Use
  Company Number: BR-PFIZER INC-2012009426

PATIENT
  Sex: Female

DRUGS (1)
  1. LYRICA [Suspect]
     Indication: FIBROMYALGIA
     Dosage: 75 MG (ONE CAPSULE), 1X/DAY
     Route: 048
     Dates: start: 20020101

REACTIONS (5)
  - CONVULSION [None]
  - DRUG INEFFECTIVE [None]
  - DEPRESSION [None]
  - BONE TUBERCULOSIS [None]
  - PAIN [None]
